FAERS Safety Report 7630679-2 (Version None)
Quarter: 2011Q3

REPORT INFORMATION
  Report Type: 
  Country: None (occurrence: None)
  Receive Date: 20110722
  Receipt Date: 20110722
  Transmission Date: 20111222
  Serious: Yes (Death, Other)
  Sender: FDA-Public Use
  Company Number: JP-B.I. PHARMACEUTICALS,INC./RIDGEFIELD-2011-BP-15532NB

PATIENT
  Sex: Female
  Weight: 30 kg

DRUGS (9)
  1. MUCOSTA [Concomitant]
     Indication: GASTRITIS
     Dosage: 200 MG
     Route: 048
     Dates: end: 20110530
  2. DIOVAN [Concomitant]
     Indication: HYPERTENSION
     Dosage: 40 MG
     Route: 048
     Dates: end: 20110530
  3. CARVEDILOL [Concomitant]
     Indication: HYPERTENSION
     Dosage: 2.5 MG
     Route: 048
     Dates: end: 20110530
  4. PRADAXA [Suspect]
     Indication: ATRIAL FIBRILLATION
     Dosage: 220 MG
     Route: 048
     Dates: start: 20110427, end: 20110530
  5. NICARDIPINE HCL [Concomitant]
     Indication: HYPERTENSION
     Dosage: 20 MG
     Route: 048
     Dates: end: 20110530
  6. LASIX [Concomitant]
     Indication: CARDIAC FAILURE
     Dosage: 20 MG
     Route: 048
     Dates: end: 20110530
  7. PRAVASTATIN SODIUM [Concomitant]
     Indication: HYPERLIPIDAEMIA
     Dosage: 5 MG
     Route: 048
     Dates: end: 20110530
  8. MUCODYNE [Concomitant]
     Indication: SPUTUM RETENTION
     Dosage: 50 MG
     Route: 048
     Dates: end: 20110530
  9. MAGNESIUM SULFATE [Concomitant]
     Indication: CONSTIPATION
     Dosage: 1 G
     Route: 048
     Dates: end: 20110530

REACTIONS (4)
  - DRUG INEFFECTIVE [None]
  - PNEUMONIA ASPIRATION [None]
  - COMA [None]
  - CEREBRAL INFARCTION [None]
